FAERS Safety Report 13307149 (Version 1)
Quarter: 2017Q1

REPORT INFORMATION
  Report Type: Spontaneous
  Country: JP (occurrence: JP)
  Receive Date: 20170308
  Receipt Date: 20170308
  Transmission Date: 20170428
  Serious: Yes (Hospitalization)
  Sender: FDA-Public Use
  Company Number: JP-OTSUKA-JP-2013-12064

PATIENT
  Age: 76 Year
  Sex: Male
  Weight: 61.6 kg

DRUGS (11)
  1. SAMSCA [Suspect]
     Active Substance: TOLVAPTAN
     Indication: FLUID RETENTION
  2. LASIX [Concomitant]
     Active Substance: FUROSEMIDE
     Indication: PRODUCT USED FOR UNKNOWN INDICATION
     Dosage: 100 MG, BID
     Route: 042
     Dates: start: 20121031
  3. TANKARU [Concomitant]
     Indication: RENAL FAILURE
     Dosage: 1000 MG, TID
     Route: 048
     Dates: start: 20121109
  4. NIFEDIPINE. [Concomitant]
     Active Substance: NIFEDIPINE
     Indication: HYPERTENSION
     Dosage: 20 MG, BID
     Route: 048
     Dates: start: 20121115
  5. SAMSCA [Suspect]
     Active Substance: TOLVAPTAN
     Indication: OEDEMA
     Dosage: 15 MG, QD
     Route: 048
     Dates: start: 20121217, end: 20121219
  6. PARIET [Concomitant]
     Active Substance: RABEPRAZOLE SODIUM
     Indication: GASTRITIS
     Dosage: 10 MG, QD
     Route: 048
     Dates: start: 20121106
  7. KREMEZIN [Concomitant]
     Active Substance: ACTIVATED CHARCOAL
     Indication: RENAL FAILURE
     Dosage: 2000 MG, BID
     Route: 048
     Dates: start: 20121109
  8. PREDNISOLONE. [Concomitant]
     Active Substance: PREDNISOLONE
     Indication: AUTOIMMUNE NEPHRITIS
     Dosage: 20 MG, QD
     Route: 048
     Dates: start: 20121109
  9. ARGAMATE [Concomitant]
     Active Substance: CALCIUM POLYSTYRENE SULFONATE
     Indication: RENAL FAILURE
     Dosage: 25 G, TID
     Route: 048
     Dates: start: 20121205
  10. FEBURIC [Concomitant]
     Active Substance: FEBUXOSTAT
     Indication: HYPERURICAEMIA
     Dosage: 20 MG, QD
     Route: 048
     Dates: start: 20121109
  11. SODIUM BICARBONATE. [Concomitant]
     Active Substance: SODIUM BICARBONATE
     Indication: RENAL FAILURE
     Dosage: 1 G, TID
     Route: 048
     Dates: start: 20121116

REACTIONS (1)
  - Liver disorder [Recovered/Resolved]

NARRATIVE: CASE EVENT DATE: 20121220
